FAERS Safety Report 6738654-7 (Version None)
Quarter: 2010Q2

REPORT INFORMATION
  Report Type: 
  Country: None (occurrence: None)
  Receive Date: 20100524
  Receipt Date: 20100519
  Transmission Date: 20101027
  Serious: No
  Sender: FDA-Public Use
  Company Number: US-CEPHALON-2010002823

PATIENT

DRUGS (1)
  1. FENTORA [Suspect]
     Route: 002

REACTIONS (1)
  - INCORRECT ROUTE OF DRUG ADMINISTRATION [None]
